FAERS Safety Report 5883663-3 (Version None)
Quarter: 2008Q3

REPORT INFORMATION
  Report Type: 
  Country: None (occurrence: None)
  Receive Date: 20080915
  Receipt Date: 20080909
  Transmission Date: 20090109
  Serious: Yes (Other)
  Sender: FDA-Public Use
  Company Number: US-BAYER-200831833NA

PATIENT
  Sex: Female

DRUGS (1)
  1. CLIMARA [Suspect]
     Indication: MENOPAUSE
     Route: 062

REACTIONS (3)
  - HORMONE LEVEL ABNORMAL [None]
  - PHARMACEUTICAL PRODUCT COMPLAINT [None]
  - TRIGEMINAL NEURALGIA [None]
